FAERS Safety Report 19508169 (Version 1)
Quarter: 2021Q3

REPORT INFORMATION
  Report Type: Spontaneous
  Country: US (occurrence: US)
  Receive Date: 20210708
  Receipt Date: 20210708
  Transmission Date: 20211014
  Serious: No
  Sender: FDA-Public Use
  Company Number: US-BAYER-2021-171709

PATIENT
  Sex: Female

DRUGS (2)
  1. MIRENA [Suspect]
     Active Substance: LEVONORGESTREL
     Dosage: 20  ?G PER DAY CONTINUOUSLY
     Route: 015
     Dates: start: 2019
  2. COVID?19 VACCINE [Concomitant]
     Dosage: UNK
     Route: 030
     Dates: start: 202104

REACTIONS (1)
  - Amenorrhoea [Recovered/Resolved]
